FAERS Safety Report 8488590-3 (Version None)
Quarter: 2012Q3

REPORT INFORMATION
  Report Type: 
  Country: None (occurrence: None)
  Receive Date: 20120705
  Receipt Date: 20120627
  Transmission Date: 20120928
  Serious: Yes (Death, Other)
  Sender: FDA-Public Use
  Company Number: PHFR2012GB003047

PATIENT
  Sex: Female
  Weight: 121 kg

DRUGS (3)
  1. CLOZARIL [Suspect]
     Indication: SCHIZOPHRENIA
     Dosage: 350 MG, UNK
     Route: 048
     Dates: start: 20010701, end: 20120417
  2. PAROXETINE HCL [Concomitant]
     Indication: DEPRESSION
     Dosage: 20 MG, UNK
     Route: 048
     Dates: start: 20100701
  3. CLOZARIL [Suspect]
     Dosage: 200 MG, UNK
     Route: 048
     Dates: start: 20120417

REACTIONS (4)
  - CIRCULATORY COLLAPSE [None]
  - GLYCOSYLATED HAEMOGLOBIN INCREASED [None]
  - CARDIOMYOPATHY [None]
  - ALBUMIN URINE PRESENT [None]
